FAERS Safety Report 15605186 (Version 1)
Quarter: 2018Q4

REPORT INFORMATION
  Report Type: Report from Study
  Country: AT (occurrence: AT)
  Receive Date: 20181112
  Receipt Date: 20181112
  Transmission Date: 20190205
  Serious: Yes (Other)
  Sender: FDA-Public Use
  Company Number: AT-ACCORD-091184

PATIENT

DRUGS (2)
  1. FLUOROURACIL. [Suspect]
     Active Substance: FLUOROURACIL
     Indication: SQUAMOUS CELL CARCINOMA OF THE ORAL CAVITY
     Dosage: 250 MG/M2 5-FLUOROURACIL OVER TWO HOURS FROM DAY ONE TO DAY FIFTEEN
     Route: 013
  2. CISPLATIN. [Suspect]
     Active Substance: CISPLATIN
     Indication: SQUAMOUS CELL CARCINOMA OF THE ORAL CAVITY
     Dosage: 50 MG/M2 CISPLATIN OVER TWO HOURS ON DAY ONE AND DAY EIGH
     Route: 013

REACTIONS (1)
  - Hemiplegia [Unknown]
